FAERS Safety Report 4411399-4 (Version None)
Quarter: 2004Q3

REPORT INFORMATION
  Report Type: 
  Country: None (occurrence: None)
  Receive Date: 20040727
  Receipt Date: 20040716
  Transmission Date: 20050211
  Serious: Yes (Hospitalization, Other)
  Sender: FDA-Public Use
  Company Number: 2004224220CH

PATIENT
  Age: 63 Year
  Sex: Male

DRUGS (3)
  1. ALDACTONE [Suspect]
     Indication: HYPERTENSION
     Dosage: 50 MG, UNK, ORAL
     Route: 048
  2. CARDIZEM [Suspect]
     Dosage: 180 MG, UNK, ORAL
     Route: 048
  3. DIOVAN [Suspect]
     Dosage: 80 MG, UNK, ORAL
     Route: 048

REACTIONS (6)
  - CARDIAC FAILURE [None]
  - CONDITION AGGRAVATED [None]
  - DYSPNOEA EXERTIONAL [None]
  - HYPERGLYCAEMIA [None]
  - HYPERKALAEMIA [None]
  - RENAL FAILURE [None]
